FAERS Safety Report 17659389 (Version 3)
Quarter: 2020Q2

REPORT INFORMATION
  Report Type: Spontaneous
  Country: US (occurrence: US)
  Receive Date: 20200413
  Receipt Date: 20200521
  Transmission Date: 20200713
  Serious: Yes (Hospitalization, Other)
  Sender: FDA-Public Use
  Company Number: US-CIPLA LTD.-2020US02395

PATIENT

DRUGS (2)
  1. AMLODIPINE [Suspect]
     Active Substance: AMLODIPINE BESYLATE
     Dosage: UNK, UNKNOWN NUMBER
     Route: 048
  2. LEVOTHYROXINE. [Suspect]
     Active Substance: LEVOTHYROXINE
     Dosage: UNK, UNKNOWN NUMBER OF PILLS
     Route: 048

REACTIONS (13)
  - Nodal rhythm [Recovering/Resolving]
  - Leukocytosis [Unknown]
  - Intentional overdose [Unknown]
  - Peripheral ischaemia [Unknown]
  - Rhabdomyolysis [Unknown]
  - Acute kidney injury [Unknown]
  - Toxicity to various agents [Unknown]
  - Hypotension [Unknown]
  - Metabolic acidosis [Unknown]
  - Haemodynamic instability [Unknown]
  - Harlequin syndrome [Unknown]
  - Liver injury [Unknown]
  - Shock [Unknown]
